FAERS Safety Report 17418024 (Version 3)
Quarter: 2021Q1

REPORT INFORMATION
  Report Type: Spontaneous
  Country: SE (occurrence: SE)
  Receive Date: 20200214
  Receipt Date: 20210212
  Transmission Date: 20210419
  Serious: Yes (Death, Hospitalization, Other)
  Sender: FDA-Public Use
  Company Number: SE-AMGEN-SWESP2020023863

PATIENT

DRUGS (6)
  1. FILGRASTIM [Suspect]
     Active Substance: FILGRASTIM
     Indication: PRODUCT USED FOR UNKNOWN INDICATION
     Dosage: 5 MICROGRAM/KILOGRAM, Q3WK(FROM DAY 2 UNTIL DAY 10?14)
     Route: 065
  2. CYCLOPHOSPHAMIDE. [Concomitant]
     Active Substance: CYCLOPHOSPHAMIDE
     Indication: NON-HODGKIN^S LYMPHOMA
     Dosage: 750 MILLIGRAM/SQ. METER, DAY 1
     Route: 042
  3. DOXORUBICIN [Concomitant]
     Active Substance: DOXORUBICIN
     Indication: NON-HODGKIN^S LYMPHOMA
     Dosage: 50 MILLIGRAM/SQ. METER, DAY 1
     Route: 042
  4. MITOXANTRONE [Concomitant]
     Active Substance: MITOXANTRONE HYDROCHLORIDE
     Indication: NON-HODGKIN^S LYMPHOMA
     Dosage: 10 MILLIGRAM/SQ. METER, DAY 1
     Route: 042
  5. PREDNISONE. [Concomitant]
     Active Substance: PREDNISONE
     Indication: NON-HODGKIN^S LYMPHOMA
     Dosage: 50 MILLIGRAM/SQ. METER, DAY 1 TO 5
     Route: 048
  6. VINCRISTINE [Concomitant]
     Active Substance: VINCRISTINE
     Indication: NON-HODGKIN^S LYMPHOMA
     Dosage: 1.4 MILLIGRAM/SQ. METER, DAY 1
     Route: 042

REACTIONS (10)
  - Disease progression [Unknown]
  - Musculoskeletal pain [Unknown]
  - Death [Fatal]
  - Febrile neutropenia [Unknown]
  - Cardiotoxicity [Unknown]
  - Alopecia [Unknown]
  - Granulocytopenia [Unknown]
  - Mucosal inflammation [Unknown]
  - Treatment failure [Unknown]
  - Gastrointestinal toxicity [Unknown]
